FAERS Safety Report 15278541 (Version 1)
Quarter: 2018Q3

REPORT INFORMATION
  Report Type: Spontaneous
  Country: SE (occurrence: SE)
  Receive Date: 20180814
  Receipt Date: 20180814
  Transmission Date: 20181010
  Serious: Yes (Other)
  Sender: FDA-Public Use
  Company Number: PHHY2018SE071904

PATIENT
  Sex: Female
  Weight: 98 kg

DRUGS (1)
  1. METOPROLOL SANDOZ [Suspect]
     Active Substance: METOPROLOL
     Indication: MYOCARDIAL INFARCTION
     Dosage: UNK
     Route: 065

REACTIONS (32)
  - Musculoskeletal stiffness [Recovered/Resolved]
  - Memory impairment [Recovered/Resolved]
  - Nasal congestion [Recovered/Resolved]
  - Sleep disorder [Recovered/Resolved]
  - Wheezing [Recovered/Resolved]
  - Paraesthesia [Recovered/Resolved]
  - Dry eye [Recovered/Resolved]
  - Eructation [Recovered/Resolved]
  - Hypoaesthesia [Recovered/Resolved]
  - Nightmare [Recovered/Resolved]
  - Abdominal pain lower [Recovered/Resolved]
  - Neck pain [Recovered/Resolved]
  - Formication [Recovered/Resolved]
  - Cough [Recovered/Resolved]
  - Fatigue [Recovered/Resolved]
  - Eye irritation [Recovered/Resolved]
  - Pruritus [Recovered/Resolved]
  - Dry mouth [Recovered/Resolved]
  - Photosensitivity reaction [Recovered/Resolved]
  - Arthralgia [Recovered/Resolved]
  - Tinnitus [Recovered/Resolved]
  - Chest pain [Recovered/Resolved]
  - Rhinorrhoea [Recovered/Resolved]
  - Muscle spasms [Recovered/Resolved]
  - Alopecia [Not Recovered/Not Resolved]
  - Insomnia [Recovered/Resolved]
  - Visual impairment [Recovered/Resolved]
  - Malaise [Recovered/Resolved]
  - Nasal discomfort [Recovered/Resolved]
  - Ear discomfort [Recovered/Resolved]
  - Dyspnoea [Not Recovered/Not Resolved]
  - Ear disorder [Recovered/Resolved]
